FAERS Safety Report 4644060-1 (Version None)
Quarter: 2005Q2

REPORT INFORMATION
  Report Type: 
  Country: None (occurrence: None)
  Receive Date: 20050425
  Receipt Date: 20050323
  Transmission Date: 20051028
  Serious: Yes (Hospitalization)
  Sender: FDA-Public Use
  Company Number: PHFR2005GB01325

PATIENT
  Age: 66 Year
  Sex: Male
  Weight: 114 kg

DRUGS (1)
  1. GLEEVEC [Suspect]
     Indication: CHRONIC MYELOID LEUKAEMIA
     Dosage: 200-400MG/DAY
     Route: 048
     Dates: start: 20030102, end: 20040721

REACTIONS (1)
  - SIDEROBLASTIC ANAEMIA [None]
